FAERS Safety Report 9163611 (Version 2)
Quarter: 2013Q2

REPORT INFORMATION
  Report Type: Spontaneous
  Country: JP (occurrence: JP)
  Receive Date: 20130314
  Receipt Date: 20130606
  Transmission Date: 20140414
  Serious: Yes (Other)
  Sender: FDA-Public Use
  Company Number: JP-009507513-1303JPN005001

PATIENT
  Age: 67 Year
  Sex: Male

DRUGS (5)
  1. DEXAMETHASONE [Suspect]
     Dosage: UNK
     Route: 042
     Dates: start: 201202
  2. DEXAMETHASONE [Suspect]
     Dosage: HIGH DOSE THERAPY
  3. LENALIDOMIDE [Suspect]
     Indication: PLASMA CELL LEUKAEMIA
     Dosage: UNK
     Route: 048
     Dates: start: 201202
  4. BORTEZOMIB [Concomitant]
     Indication: PLASMA CELL LEUKAEMIA
  5. MELPHALAN [Concomitant]
     Indication: PLASMA CELL LEUKAEMIA
     Dosage: 200 MG/M2, UNK

REACTIONS (1)
  - Viral haemorrhagic cystitis [Unknown]
